FAERS Safety Report 11981635 (Version 1)
Quarter: 2016Q1

REPORT INFORMATION
  Report Type: Spontaneous
  Country: US (occurrence: None)
  Receive Date: 20160129
  Receipt Date: 20160129
  Transmission Date: 20160526
  Serious: Yes (Other)
  Sender: FDA-Public Use
  Company Number: None

PATIENT
  Age: 63 Year
  Sex: Male

DRUGS (1)
  1. HUMIRA [Suspect]
     Active Substance: ADALIMUMAB
     Indication: PSORIASIS
     Dosage: 1 PEN, QOW, SUBCUTANEOUS
     Route: 058
     Dates: start: 20141222

REACTIONS (2)
  - Neoplasm malignant [None]
  - Therapy cessation [None]

NARRATIVE: CASE EVENT DATE: 20151222
